FAERS Safety Report 12187929 (Version 1)
Quarter: 2016Q1

REPORT INFORMATION
  Report Type: Report from Study
  Country: BR (occurrence: BR)
  Receive Date: 20160317
  Receipt Date: 20160317
  Transmission Date: 20160526
  Serious: Yes (Hospitalization)
  Sender: FDA-Public Use
  Company Number: US-ASTRAZENECA-2015SF31840

PATIENT
  Age: 364 Day
  Sex: Female
  Weight: 12 kg

DRUGS (7)
  1. ZINC [Concomitant]
     Active Substance: ZINC\ZINC CHLORIDE
     Indication: IMMUNE SYSTEM DISORDER
     Route: 048
     Dates: start: 201507
  2. BRONCHO-VAXOM [Concomitant]
     Indication: IMMUNE SYSTEM DISORDER
     Dosage: 10 DAYS IN A MONTH
     Route: 048
     Dates: start: 20151115
  3. CUPRUM [Concomitant]
     Indication: IMMUNE SYSTEM DISORDER
     Dosage: FORM OF ADMINISTRATION: INHALANT/SPRAY, EVERY DAY
     Route: 048
     Dates: start: 201507
  4. SYNAGIS [Suspect]
     Active Substance: PALIVIZUMAB
     Indication: PREMATURE BABY
     Route: 030
     Dates: start: 20150715
  5. KALOBA [Concomitant]
     Indication: IMMUNE SYSTEM DISORDER
     Route: 048
     Dates: start: 201509
  6. BRONCHO-VAXOM [Concomitant]
     Indication: IMMUNISATION
     Dosage: 10 DAYS IN A MONTH
     Route: 048
     Dates: start: 20151115
  7. PROTOVIT [Concomitant]
     Indication: PREMATURE BABY
     Route: 048
     Dates: start: 201409

REACTIONS (8)
  - Bronchitis [Unknown]
  - Rotavirus infection [Recovered/Resolved]
  - Influenza [Recovered/Resolved]
  - Urticaria [Recovered/Resolved]
  - Gastrointestinal disorder [Unknown]
  - General physical health deterioration [Unknown]
  - Bronchiolitis [Recovered/Resolved]
  - Rhinorrhoea [Recovered/Resolved]

NARRATIVE: CASE EVENT DATE: 20150716
